FAERS Safety Report 26043026 (Version 1)
Quarter: 2025Q4

REPORT INFORMATION
  Report Type: Spontaneous
  Country: US (occurrence: US)
  Receive Date: 20251113
  Receipt Date: 20251113
  Transmission Date: 20260117
  Serious: No
  Sender: ANI
  Company Number: US-ANIPHARMA-2025-US-048212

PATIENT
  Age: 64 Year
  Sex: Male

DRUGS (1)
  1. CORTICOTROPIN [Suspect]
     Active Substance: CORTICOTROPIN
     Indication: Rheumatoid arthritis
     Dosage: 2X WEEKLY
     Route: 058
     Dates: start: 20250722, end: 20250808

REACTIONS (2)
  - Injection site abscess [Unknown]
  - Injection site mass [Unknown]

NARRATIVE: CASE EVENT DATE: 20250722
